FAERS Safety Report 4666025-6 (Version None)
Quarter: 2005Q2

REPORT INFORMATION
  Report Type: 
  Country: None (occurrence: None)
  Receive Date: 20050517
  Receipt Date: 20050413
  Transmission Date: 20051028
  Serious: No
  Sender: FDA-Public Use
  Company Number: S05-USA-01915-01

PATIENT
  Age: 95 Year
  Sex: Female

DRUGS (10)
  1. NAMENDA [Suspect]
     Indication: DEMENTIA
     Dosage: 5 MG QD; PO
     Route: 048
     Dates: start: 20050201, end: 20050101
  2. NAMENDA [Suspect]
     Indication: DEMENTIA
     Dosage: 10 MG QD; PO
     Route: 048
     Dates: start: 20050101, end: 20050101
  3. NAMENDA [Suspect]
     Indication: DEMENTIA
     Dosage: 15 MG QD; PO
     Route: 048
     Dates: start: 20050101, end: 20050101
  4. NAMENDA [Suspect]
     Indication: DEMENTIA
     Dosage: 10 MG QD; PO
     Route: 048
     Dates: start: 20050324
  5. NAMENDA [Suspect]
     Indication: DEMENTIA
     Dosage: 10 MG BID; PO
     Route: 048
     Dates: start: 20050101, end: 20050323
  6. ARICEPT [Concomitant]
  7. PLAVIX [Concomitant]
  8. SYNTHROID [Concomitant]
  9. LISINOPRIL [Concomitant]
  10. DIGOXIN [Concomitant]

REACTIONS (1)
  - SOMNOLENCE [None]
